FAERS Safety Report 12648150 (Version 2)
Quarter: 2016Q3

REPORT INFORMATION
  Report Type: Report from Study
  Country: FR (occurrence: FR)
  Receive Date: 20160812
  Receipt Date: 20160816
  Transmission Date: 20161109
  Serious: Yes (Hospitalization)
  Sender: FDA-Public Use
  Company Number: FR-ABBVIE-16K-056-1694680-00

PATIENT
  Age: 52 Year
  Sex: Male
  Weight: 86 kg

DRUGS (2)
  1. AZATHIOPRINE. [Suspect]
     Active Substance: AZATHIOPRINE
     Indication: CROHN^S DISEASE
     Route: 048
     Dates: start: 20140429
  2. HUMIRA [Suspect]
     Active Substance: ADALIMUMAB
     Indication: CROHN^S DISEASE
     Route: 058
     Dates: start: 20140513

REACTIONS (5)
  - Hepatic pain [Recovered/Resolved]
  - Cholelithiasis [Unknown]
  - Abdominal pain [Unknown]
  - Abdominal abscess [Unknown]
  - Gastritis [Unknown]

NARRATIVE: CASE EVENT DATE: 2014
